FAERS Safety Report 7476500-7 (Version None)
Quarter: 2011Q2

REPORT INFORMATION
  Report Type: 
  Country: None (occurrence: None)
  Receive Date: 20110512
  Receipt Date: 20110422
  Transmission Date: 20111010
  Serious: No
  Sender: FDA-Public Use
  Company Number: US-B.I. PHARMACEUTICALS,INC./RIDGEFIELD-2011-BP-06868BP

PATIENT
  Sex: Male

DRUGS (9)
  1. PRADAXA [Suspect]
     Indication: ATRIAL FIBRILLATION
     Dosage: 300 MG
     Route: 048
     Dates: start: 20110201
  2. DILTIAZEM [Concomitant]
  3. METHOTREXATE [Concomitant]
  4. ENBREL [Concomitant]
  5. PRADAXA [Suspect]
     Route: 048
  6. PREDNISONE [Concomitant]
  7. DOLOBID [Concomitant]
  8. AMIODARONE HCL [Concomitant]
  9. RILUTEK [Concomitant]

REACTIONS (4)
  - ASTHENIA [None]
  - TREMOR [None]
  - HAEMORRHAGE [None]
  - OEDEMA PERIPHERAL [None]
